FAERS Safety Report 6241503-7 (Version None)
Quarter: 2009Q2

REPORT INFORMATION
  Report Type: 
  Country: None (occurrence: None)
  Receive Date: 20090623
  Receipt Date: 20030919
  Transmission Date: 20091009
  Serious: Yes (Hospitalization, Other)
  Sender: FDA-Public Use
  Company Number: AU-ROCHE-346603

PATIENT
  Sex: Male
  Weight: 100.3 kg

DRUGS (35)
  1. DACLIZUMAB [Suspect]
     Route: 042
     Dates: start: 20030903
  2. DACLIZUMAB [Suspect]
     Route: 042
     Dates: start: 20030916, end: 20031028
  3. MYCOPHENOLATE MOFETIL [Suspect]
     Dosage: DRUG REPORTED: MYCOPHENOLATE
     Route: 048
     Dates: start: 20030902
  4. MYCOPHENOLATE MOFETIL [Suspect]
     Route: 048
     Dates: start: 20040106
  5. CYCLOSPORINE [Suspect]
     Dosage: DRUG REPORTED: CYCLOSPORIN
     Route: 048
     Dates: start: 20030902
  6. CYCLOSPORINE [Suspect]
     Route: 048
     Dates: start: 20030906
  7. CYCLOSPORINE [Suspect]
     Route: 048
     Dates: start: 20030930
  8. CYCLOSPORINE [Suspect]
     Route: 048
     Dates: start: 20031003
  9. CYCLOSPORINE [Suspect]
     Route: 048
     Dates: start: 20031007, end: 20031007
  10. CYCLOSPORINE [Suspect]
     Dosage: DRUG REPORTED: CYCLOSPORIN
     Route: 048
     Dates: start: 20031007
  11. CYCLOSPORINE [Suspect]
     Dosage: ROUTE: PL
     Route: 048
     Dates: start: 20031107, end: 20031107
  12. CYCLOSPORINE [Suspect]
     Route: 048
     Dates: start: 20031108
  13. PREDNISOLONE [Suspect]
     Route: 048
     Dates: start: 20030902
  14. PREDNISOLONE [Suspect]
     Route: 048
     Dates: start: 20031029
  15. PREDNISOLONE [Suspect]
     Route: 048
     Dates: start: 20040420
  16. ZOLPIDEM TARTRATE [Suspect]
     Indication: INSOMNIA
     Dosage: AT NIGHT
     Route: 048
     Dates: start: 20030910, end: 20030910
  17. AMLODIPINE [Concomitant]
     Route: 048
     Dates: start: 20030905, end: 20040120
  18. CITALOPRAM HYDROBROMIDE [Concomitant]
     Route: 048
     Dates: start: 20030910
  19. METOPROLOL SUCCINATE [Concomitant]
     Route: 048
     Dates: start: 20021212
  20. METOPROLOL SUCCINATE [Concomitant]
     Route: 048
     Dates: start: 20030911
  21. METOPROLOL SUCCINATE [Concomitant]
     Route: 048
     Dates: start: 20031102
  22. METOPROLOL SUCCINATE [Concomitant]
     Route: 048
     Dates: start: 20031123
  23. PRAZSOIN HCL [Concomitant]
     Route: 048
     Dates: start: 20001101
  24. PRAZSOIN HCL [Concomitant]
     Route: 048
     Dates: start: 20030904
  25. PRAZSOIN HCL [Concomitant]
     Route: 048
     Dates: start: 20031028, end: 20031104
  26. RANITIDINE [Concomitant]
     Route: 048
     Dates: start: 20030903
  27. BACTRIM [Concomitant]
     Route: 048
     Dates: start: 20030904, end: 20040420
  28. NYSTATIN [Concomitant]
     Route: 048
     Dates: start: 20030903, end: 20031121
  29. SANDOZ PHOSPHATE [Concomitant]
     Route: 048
     Dates: start: 20030909
  30. METOCLOPRAMIDE HYDROCHLORIDE [Concomitant]
     Route: 030
     Dates: start: 20001017
  31. TEMAZEPAM [Concomitant]
     Route: 048
     Dates: start: 20030912, end: 20030913
  32. ACETAMINOPHEN [Concomitant]
     Route: 048
     Dates: start: 20030910, end: 20030912
  33. LERCANIDIPINE [Concomitant]
     Route: 048
     Dates: start: 20000101, end: 20030903
  34. CEFAZOLIN SODIUM [Concomitant]
     Dosage: DRUG REPORTED: CEPHAZOLIN SODIUM
     Route: 042
     Dates: start: 20030903, end: 20030906
  35. VALACYCLOVIR [Concomitant]
     Route: 048
     Dates: start: 20030905, end: 20031223

REACTIONS (3)
  - LYMPHOCELE [None]
  - OVERDOSE [None]
  - URETERIC OBSTRUCTION [None]
